FAERS Safety Report 8268360-1 (Version None)
Quarter: 2012Q2

REPORT INFORMATION
  Report Type: 
  Country: None (occurrence: None)
  Receive Date: 20120409
  Receipt Date: 20120329
  Transmission Date: 20120825
  Serious: Yes (Other)
  Sender: FDA-Public Use
  Company Number: CA-JNJFOC-20120315213

PATIENT
  Sex: Male
  Weight: 70.6 kg

DRUGS (4)
  1. METHOTREXATE [Concomitant]
     Route: 065
  2. REMICADE [Suspect]
     Indication: CROHN'S DISEASE
     Route: 042
     Dates: start: 20111001
  3. PREDNISONE [Concomitant]
     Route: 065
  4. FLAGYL [Concomitant]
     Route: 065

REACTIONS (3)
  - HAEMATOCHEZIA [None]
  - FREQUENT BOWEL MOVEMENTS [None]
  - FATIGUE [None]
